FAERS Safety Report 20829719 (Version 1)
Quarter: 2022Q2

REPORT INFORMATION
  Report Type: Spontaneous
  Country: US (occurrence: US)
  Receive Date: 20220513
  Receipt Date: 20220513
  Transmission Date: 20220720
  Serious: No
  Sender: FDA-Public Use
  Company Number: US-PFIZER INC-202101724095

PATIENT
  Age: 63 Year

DRUGS (3)
  1. CELEBREX [Suspect]
     Active Substance: CELECOXIB
     Dosage: UNK
  2. BEXTRA [Suspect]
     Active Substance: VALDECOXIB
     Dosage: UNK
  3. MELOXICAM [Suspect]
     Active Substance: MELOXICAM
     Dosage: UNK

REACTIONS (2)
  - Drug hypersensitivity [Unknown]
  - Urticaria [Unknown]
